FAERS Safety Report 18717270 (Version 1)
Quarter: 2021Q1

REPORT INFORMATION
  Report Type: Spontaneous
  Country: TW (occurrence: TW)
  Receive Date: 20210108
  Receipt Date: 20210108
  Transmission Date: 20210419
  Serious: Yes (Life-Threatening, Other)
  Sender: FDA-Public Use
  Company Number: TW-PFIZER INC-2021006529

PATIENT
  Age: 81 Year
  Sex: Female
  Weight: 60 kg

DRUGS (13)
  1. STROCAIN [ALUMINIUM HYDROXIDE;CALCIUM CARBONATE;MAGNESIUM CARBONATE;OX [Concomitant]
     Dosage: 1 DF, 2X/DAY (5.0MG/244.0MG TABLETS)
     Dates: start: 20201016
  2. KOLAX [Concomitant]
     Dosage: 1 DF, 3X/DAY
     Dates: start: 20201202
  3. NIRANDIL [Concomitant]
     Dosage: 1 DF, 2X/DAY
     Dates: start: 20201016
  4. ARCOXIA [Suspect]
     Active Substance: ETORICOXIB
  5. COXINE [Concomitant]
     Dosage: 1 DF, 2X/DAY
     Dates: start: 20201016
  6. PLAQUENIL [Suspect]
     Active Substance: HYDROXYCHLOROQUINE SULFATE
     Dosage: 1 DF, 2X/DAY
     Dates: start: 20201208
  7. DOXYCYCLINE HCL [Concomitant]
     Active Substance: DOXYCYCLINE HYDROCHLORIDE
     Indication: SYPHILIS
     Dosage: 1 DF, 2X/DAY
     Dates: start: 20201225
  8. METHOTREXATE SODIUM. [Suspect]
     Active Substance: METHOTREXATE SODIUM
     Dosage: 1 DF, AS NEEDED, THREE TIMES
     Dates: start: 20201208
  9. PREDNISOLONE. [Suspect]
     Active Substance: PREDNISOLONE
     Dosage: 1 DF, 2X/DAY
     Dates: start: 20201208
  10. CONSLIFE [Concomitant]
     Dosage: 2 DF, 1X/DAY
     Dates: start: 20201016
  11. DIVASTAN [Concomitant]
     Dosage: 1 DF, 1X/DAY
     Dates: start: 20201016
  12. DUALPRESS [Concomitant]
     Dosage: 1 DF, 1X/DAY
     Dates: start: 20201016
  13. FOLIC ACID. [Concomitant]
     Active Substance: FOLIC ACID
     Dosage: 1 DF, AS NEEDED, THREE TIMES (^GCPC^)
     Dates: start: 20201208

REACTIONS (9)
  - Septic shock [Recovering/Resolving]
  - Bacteraemia [Recovering/Resolving]
  - Pancytopenia [Recovering/Resolving]
  - Shock [Recovering/Resolving]
  - Shock haemorrhagic [Recovering/Resolving]
  - Atrial fibrillation [Recovering/Resolving]
  - Mouth ulceration [Recovering/Resolving]
  - Gastrointestinal haemorrhage [Recovering/Resolving]
  - Pneumonia klebsiella [Recovering/Resolving]

NARRATIVE: CASE EVENT DATE: 202012
